FAERS Safety Report 4969376-0 (Version None)
Quarter: 2006Q2

REPORT INFORMATION
  Report Type: 
  Country: None (occurrence: None)
  Receive Date: 20060405
  Receipt Date: 20060321
  Transmission Date: 20061013
  Serious: Yes (Other)
  Sender: FDA-Public Use
  Company Number: 006976

PATIENT
  Age: 15 Year
  Sex: Female
  Weight: 63.5 kg

DRUGS (1)
  1. CLARAVIS [Suspect]
     Indication: ACNE CYSTIC
     Dosage: 3 CAPS., BID, ORAL
     Route: 048
     Dates: start: 20060221, end: 20060321

REACTIONS (3)
  - DEPRESSED MOOD [None]
  - DISTURBANCE IN ATTENTION [None]
  - SELF INJURIOUS BEHAVIOUR [None]
